FAERS Safety Report 6649510-7 (Version None)
Quarter: 2010Q1

REPORT INFORMATION
  Report Type: 
  Country: None (occurrence: None)
  Receive Date: 20100324
  Receipt Date: 20100324
  Transmission Date: 20100710
  Serious: Yes (Hospitalization)
  Sender: FDA-Public Use
  Company Number: None

PATIENT
  Age: 75 Year
  Sex: Female
  Weight: 50 kg

DRUGS (11)
  1. CARBIDOPA + LEVODOPA [Suspect]
     Indication: PARKINSON'S DISEASE
     Dosage: 25/250 TID PO, PRIOR TO ADMIT
     Route: 048
  2. DONEPEZIL HCL [Concomitant]
  3. ASPIRIN [Concomitant]
  4. CALCIUM + VITAMIN D [Concomitant]
  5. ROSUVASTATIN [Concomitant]
  6. FLUDROCORTISONE [Concomitant]
  7. TOLTERODINE [Concomitant]
  8. ESCITALOPRAM [Concomitant]
  9. MIDODRINE HYDROCHLORIDE [Concomitant]
  10. POLYETHYLENE GLYCOL [Concomitant]
  11. POTASSIUM CHLORIDE [Concomitant]

REACTIONS (4)
  - APHASIA [None]
  - ASTHENIA [None]
  - CONFUSIONAL STATE [None]
  - MENTAL STATUS CHANGES [None]
